FAERS Safety Report 4582493-2 (Version None)
Quarter: 2005Q1

REPORT INFORMATION
  Report Type: 
  Country: None (occurrence: None)
  Receive Date: 20050215
  Receipt Date: 20050203
  Transmission Date: 20050727
  Serious: Yes (Hospitalization)
  Sender: FDA-Public Use
  Company Number: US-JNJFOC-20041202435

PATIENT
  Sex: Female
  Weight: 108 kg

DRUGS (5)
  1. TOPAMAX [Suspect]
     Indication: MIGRAINE PROPHYLAXIS
     Route: 049
     Dates: start: 20041027, end: 20041205
  2. ADDERALL 10 [Concomitant]
  3. ADDERALL 10 [Concomitant]
  4. ADDERALL 10 [Concomitant]
  5. ADDERALL 10 [Concomitant]

REACTIONS (2)
  - MENORRHAGIA [None]
  - TOXIC SHOCK SYNDROME [None]
